FAERS Safety Report 8514650-4 (Version None)
Quarter: 2012Q3

REPORT INFORMATION
  Report Type: 
  Country: None (occurrence: None)
  Receive Date: 20120717
  Receipt Date: 20120710
  Transmission Date: 20120928
  Serious: Yes (Disabling, Other)
  Sender: FDA-Public Use
  Company Number: GB-B.I. PHARMACEUTICALS,INC./RIDGEFIELD-2012-UK-00911UK

PATIENT
  Age: 79 Year
  Sex: Female
  Weight: 78 kg

DRUGS (27)
  1. ACETAMINOPHEN AND CODEINE PHOSPHATE [Concomitant]
     Dates: start: 20120322, end: 20120403
  2. GAVISCON [Concomitant]
     Dates: start: 20120619
  3. RAMIPRIL [Concomitant]
     Dates: start: 20120322, end: 20120419
  4. SODIUM PICOSULFATE [Concomitant]
     Dates: start: 20120502, end: 20120522
  5. TIOTROPIUM BROMIDE [Concomitant]
     Dates: start: 20120619
  6. AMIODARONE HCL [Concomitant]
     Dates: start: 20120502
  7. BUDESONIDE [Concomitant]
     Dates: start: 20120502
  8. NITROGLYCERIN [Concomitant]
     Dates: start: 20120529
  9. DABIGATRAN [Suspect]
     Dates: start: 20120607
  10. AMIODARONE HCL [Concomitant]
     Dates: start: 20120322, end: 20120419
  11. LOFEPRAMINE [Concomitant]
     Dates: start: 20120607
  12. TIOTROPIUM BROMIDE [Concomitant]
     Dates: start: 20120411, end: 20120509
  13. WARFARIN SODIUM [Concomitant]
     Dates: start: 20120411, end: 20120626
  14. AMOXICILLIN [Concomitant]
     Dates: start: 20120529, end: 20120605
  15. BUMETANIDE [Concomitant]
     Dates: start: 20120502, end: 20120530
  16. BUMETANIDE [Concomitant]
     Dates: start: 20120322, end: 20120419
  17. IVABRADINE [Concomitant]
     Dates: start: 20120307, end: 20120419
  18. LANSOPRAZOLE [Concomitant]
     Dates: start: 20120619
  19. GAVISCON [Concomitant]
     Dates: start: 20120322, end: 20120416
  20. LANSOPRAZOLE [Concomitant]
     Dates: start: 20120411, end: 20120509
  21. LOFEPRAMINE [Concomitant]
     Dates: start: 20120502, end: 20120530
  22. LOFEPRAMINE [Concomitant]
     Dates: start: 20120322, end: 20120419
  23. RANITIDINE [Concomitant]
     Dates: start: 20120322, end: 20120421
  24. SPIRONOLACTONE [Concomitant]
     Dates: start: 20120322
  25. BUMETANIDE [Concomitant]
     Dates: start: 20120619
  26. LACTULOSE [Concomitant]
     Dates: start: 20120322, end: 20120419
  27. RAMIPRIL [Concomitant]
     Dates: start: 20120502, end: 20120626

REACTIONS (2)
  - NAUSEA [None]
  - VOMITING [None]
